FAERS Safety Report 6551043-3 (Version None)
Quarter: 2010Q1

REPORT INFORMATION
  Report Type: 
  Country: None (occurrence: None)
  Receive Date: 20100125
  Receipt Date: 20100115
  Transmission Date: 20100710
  Serious: Yes (Other)
  Sender: FDA-Public Use
  Company Number: ZA-AMGEN-QUU385913

PATIENT
  Age: 30 Year
  Sex: Female
  Weight: 75 kg

DRUGS (3)
  1. VECTIBIX [Suspect]
     Indication: COLORECTAL CANCER
     Route: 042
     Dates: start: 20091130
  2. MAXOLON [Concomitant]
     Route: 042
     Dates: start: 20091130
  3. DECADRON [Concomitant]
     Route: 042
     Dates: start: 20091130

REACTIONS (2)
  - PALPITATIONS [None]
  - TACHYCARDIA [None]
